FAERS Safety Report 18239042 (Version 2)
Quarter: 2020Q4

REPORT INFORMATION
  Report Type: Report from Study
  Country: US (occurrence: US)
  Receive Date: 20200907
  Receipt Date: 20201002
  Transmission Date: 20210113
  Serious: No
  Sender: FDA-Public Use
  Company Number: US-ASTRAZENECA-2020SF11522

PATIENT
  Age: 18663 Day
  Sex: Female
  Weight: 99.8 kg

DRUGS (3)
  1. NEBULIZER ALBUTEROL [Concomitant]
     Active Substance: ALBUTEROL
     Indication: ASTHMA
     Dosage: 0.083% UNKNOWN
     Route: 055
  2. SYMBICORT [Suspect]
     Active Substance: BUDESONIDE\FORMOTEROL FUMARATE DIHYDRATE
     Indication: ASTHMA
     Dosage: 160/4.5 MCGS TWO PUFFS TWO TIMES A DAY
     Route: 055
     Dates: start: 201906
  3. PRO AIR INHALER [Concomitant]
     Indication: DYSPNOEA
     Dosage: AS REQUIRED
     Route: 055

REACTIONS (3)
  - Inability to afford medication [Unknown]
  - Back pain [Unknown]
  - Dyspnoea [Unknown]
